FAERS Safety Report 9620339 (Version 1)
Quarter: 2013Q4

REPORT INFORMATION
  Report Type: Spontaneous
  Country: None (occurrence: US)
  Receive Date: 20131014
  Receipt Date: 20131014
  Transmission Date: 20140711
  Serious: No
  Sender: FDA-Public Use
  Company Number: US-ALLERGAN-1213906US

PATIENT
  Sex: Male

DRUGS (2)
  1. ALPHAGAN P [Suspect]
     Indication: GLAUCOMA
     Dosage: 2 GTT, BID
     Route: 047
  2. XALATAN                            /01297301/ [Concomitant]
     Indication: GLAUCOMA
     Dosage: UNK

REACTIONS (1)
  - Therapeutic response unexpected [Not Recovered/Not Resolved]
